FAERS Safety Report 20756853 (Version 1)
Quarter: 2022Q2

REPORT INFORMATION
  Report Type: Spontaneous
  Country: US (occurrence: US)
  Receive Date: 20220427
  Receipt Date: 20220427
  Transmission Date: 20220721
  Serious: No
  Sender: FDA-Public Use
  Company Number: US-BIOGEN-2022BI01099392

PATIENT
  Sex: Female
  Weight: 69.916 kg

DRUGS (5)
  1. SPINRAZA [Suspect]
     Active Substance: NUSINERSEN
     Indication: Spinal muscular atrophy
     Dosage: LOADING DOSE
     Route: 037
  2. SPINRAZA [Suspect]
     Active Substance: NUSINERSEN
     Dosage: LOADING DOSE
     Route: 037
  3. SPINRAZA [Suspect]
     Active Substance: NUSINERSEN
     Dosage: LOADING DOSE
     Route: 037
  4. SPINRAZA [Suspect]
     Active Substance: NUSINERSEN
     Dosage: LOADING DOSE
     Route: 037
  5. SPINRAZA [Suspect]
     Active Substance: NUSINERSEN
     Dosage: MAINTENANCE DOSE
     Route: 037

REACTIONS (2)
  - Asthenia [Unknown]
  - Therapeutic response shortened [Unknown]

NARRATIVE: CASE EVENT DATE: 20220101
